FAERS Safety Report 7338980-7 (Version None)
Quarter: 2011Q1

REPORT INFORMATION
  Report Type: 
  Country: None (occurrence: None)
  Receive Date: 20110228
  Receipt Date: 20110214
  Transmission Date: 20110831
  Serious: Yes (Other)
  Sender: FDA-Public Use
  Company Number: MC201100058

PATIENT
  Age: 77 Year

DRUGS (7)
  1. GLUCOPHAGE [Concomitant]
  2. ANGIOMAX [Suspect]
     Indication: CAROTID ARTERY STENT INSERTION
     Dosage: INTRAVENOUS ; INFUSION ,INTRAVENOUS
     Route: 042
     Dates: start: 20110201, end: 20110201
  3. ANGIOMAX [Suspect]
     Indication: CAROTID ARTERY STENT INSERTION
     Dosage: INTRAVENOUS ; INFUSION ,INTRAVENOUS
     Route: 042
     Dates: start: 20110201, end: 20110214
  4. PLAVIX [Concomitant]
  5. CRESTOR [Concomitant]
  6. ASPIRIN [Concomitant]
  7. BENICAR [Concomitant]

REACTIONS (4)
  - CEREBROVASCULAR ACCIDENT [None]
  - OFF LABEL USE [None]
  - PROCEDURAL COMPLICATION [None]
  - INTERNATIONAL NORMALISED RATIO INCREASED [None]
